FAERS Safety Report 18713032 (Version 1)
Quarter: 2021Q1

REPORT INFORMATION
  Report Type: Spontaneous
  Country: US (occurrence: US)
  Receive Date: 20210107
  Receipt Date: 20210107
  Transmission Date: 20210419
  Serious: No
  Sender: FDA-Public Use
  Company Number: US-ASTRAZENECA-2020SF67563

PATIENT
  Age: 53 Year
  Sex: Male
  Weight: 198.2 kg

DRUGS (1)
  1. LOKELMA [Suspect]
     Active Substance: SODIUM ZIRCONIUM CYCLOSILICATE
     Indication: BLOOD POTASSIUM INCREASED
     Route: 048
     Dates: start: 2020

REACTIONS (5)
  - Product administration error [Unknown]
  - Decreased appetite [Recovered/Resolved]
  - Intentional product misuse [Unknown]
  - Ageusia [Recovered/Resolved]
  - Wrong technique in product usage process [Unknown]
